FAERS Safety Report 14185850 (Version 1)
Quarter: 2017Q4

REPORT INFORMATION
  Report Type: Spontaneous
  Country: GB (occurrence: GB)
  Receive Date: 20171114
  Receipt Date: 20171114
  Transmission Date: 20180321
  Serious: Yes (Death, Other)
  Sender: FDA-Public Use
  Company Number: GB-AMGEN-GBRSP2017168163

PATIENT
  Age: 77 Year
  Sex: Male

DRUGS (1)
  1. PROLIA [Suspect]
     Active Substance: DENOSUMAB
     Indication: OSTEOPOROSIS
     Dosage: UNK UNK, Q6MO
     Route: 065

REACTIONS (6)
  - Death [Fatal]
  - Throat cancer [Unknown]
  - Fall [Unknown]
  - Cardiac failure [Unknown]
  - Dementia [Unknown]
  - Hip fracture [Unknown]

NARRATIVE: CASE EVENT DATE: 2013
